FAERS Safety Report 7432001-3 (Version None)
Quarter: 2011Q1

REPORT INFORMATION
  Report Type: 
  Country: None (occurrence: None)
  Receive Date: 20110302
  Receipt Date: 20101115
  Transmission Date: 20110831
  Serious: Yes (Other)
  Sender: FDA-Public Use
  Company Number: 021332

PATIENT
  Sex: Female
  Weight: 58.9676 kg

DRUGS (6)
  1. LOMOTIL [Concomitant]
  2. CIMZIA [Suspect]
     Indication: CROHN'S DISEASE
     Dosage: SUBCUTANEOUS
     Route: 058
     Dates: start: 20090128
  3. PROZAC [Concomitant]
  4. BENTYL [Concomitant]
  5. PREDNISONE [Concomitant]
  6. CIPROFLOXACIN [Concomitant]

REACTIONS (1)
  - CROHN'S DISEASE [None]
